FAERS Safety Report 5847184-6 (Version None)
Quarter: 2008Q3

REPORT INFORMATION
  Report Type: 
  Country: None (occurrence: None)
  Receive Date: 20080815
  Receipt Date: 20080811
  Transmission Date: 20090109
  Serious: Yes (Life-Threatening, Hospitalization)
  Sender: FDA-Public Use
  Company Number: PHEH2008US07046

PATIENT
  Age: 15 Year
  Sex: Female
  Weight: 68 kg

DRUGS (8)
  1. EXJADE [Suspect]
     Indication: SICKLE CELL ANAEMIA
     Dosage: 1500 MG, QD
     Route: 048
     Dates: start: 20061101, end: 20080811
  2. EXJADE [Suspect]
     Indication: IRON OVERLOAD
  3. MOTRIN [Concomitant]
     Dosage: UNK, UNK
  4. DESMOPRESSIN ACETATE [Concomitant]
     Dosage: UNK, UNK
  5. DEPO-PROVERA [Concomitant]
     Dosage: UNK, UNK
  6. FOLIC ACID [Concomitant]
     Dosage: UNK, UNK
  7. MULTIVITAMIN ^LAPPE^ [Concomitant]
     Dosage: UNK, UNK
  8. BENADRYL ^ACHE^ [Concomitant]
     Dosage: UNK, UNK

REACTIONS (9)
  - ALBUMIN URINE PRESENT [None]
  - BIOPSY KIDNEY [None]
  - BLOOD ALBUMIN DECREASED [None]
  - BLOOD URINE PRESENT [None]
  - CONNECTIVE TISSUE DISORDER [None]
  - HYPOPROTEINAEMIA [None]
  - NEPHROTIC SYNDROME [None]
  - PROTEIN TOTAL DECREASED [None]
  - PROTEINURIA [None]
